FAERS Safety Report 8977640 (Version 1)
Quarter: 2012Q4

REPORT INFORMATION
  Report Type: Report from Study
  Country: AU (occurrence: AU)
  Receive Date: 20121220
  Receipt Date: 20121220
  Transmission Date: 20130627
  Serious: Yes (Death, Hospitalization)
  Sender: FDA-Public Use
  Company Number: AU-GLAXOSMITHKLINE-B0851456A

PATIENT
  Age: 55 Year
  Sex: Female

DRUGS (16)
  1. TIMENTIN [Suspect]
     Indication: PROPHYLAXIS
     Dosage: 2G Twice per day
     Route: 042
     Dates: start: 20040810, end: 20040812
  2. MYCOPHENOLATE MOFETIL [Suspect]
     Indication: PROPHYLAXIS AGAINST TRANSPLANT REJECTION
     Dosage: 1000MG Per day
     Route: 048
     Dates: start: 20040809
  3. MYCOPHENOLATE MOFETIL [Suspect]
     Indication: PROPHYLAXIS AGAINST TRANSPLANT REJECTION
     Dosage: 1000G Per day
     Route: 048
     Dates: start: 20040819, end: 20040820
  4. DACLIZUMAB [Suspect]
     Indication: PROPHYLAXIS AGAINST TRANSPLANT REJECTION
     Dosage: 1MGK per day
     Route: 042
  5. CICLOSPORIN [Suspect]
     Indication: PROPHYLAXIS AGAINST TRANSPLANT REJECTION
     Route: 048
     Dates: start: 20040810
  6. METHYLPREDNISOLONE [Suspect]
     Indication: PROPHYLAXIS AGAINST TRANSPLANT REJECTION
     Route: 042
     Dates: start: 20040810
  7. PREDNISOLONE [Suspect]
     Indication: PROPHYLAXIS AGAINST TRANSPLANT REJECTION
     Dosage: 30MG Per day
     Route: 048
     Dates: start: 20040813
  8. METOPROLOL [Concomitant]
     Route: 048
     Dates: start: 200402, end: 20040919
  9. SERETIDE [Concomitant]
     Indication: RESPIRATORY DISORDER
     Dosage: 1PUFF per day
     Dates: start: 1999
  10. CALCITRIOL [Concomitant]
     Dosage: .25MG per day
     Route: 048
     Dates: start: 20040811
  11. BACTRIM [Concomitant]
     Dosage: 480MG per day
     Route: 048
     Dates: start: 20040811, end: 20040819
  12. OMEPRAZOLE [Concomitant]
     Dosage: 20MG Twice per day
     Route: 048
     Dates: start: 20040809, end: 20040812
  13. GLICLAZIDE [Concomitant]
     Route: 048
     Dates: start: 20040812
  14. GLIMEPIRIDE [Concomitant]
     Dosage: 1MG Per day
     Route: 048
     Dates: start: 20040812
  15. NYSTATIN [Concomitant]
     Dosage: 1000IU Three times per day
     Route: 048
     Dates: start: 20040810, end: 20040901
  16. VALACYCLOVIR [Concomitant]
     Dosage: 1500MG Per day
     Route: 048
     Dates: start: 20040811

REACTIONS (3)
  - Cardiac arrest [Fatal]
  - Pneumoperitoneum [Recovered/Resolved]
  - Renal tubular necrosis [Unknown]
